FAERS Safety Report 10860901 (Version 4)
Quarter: 2015Q3

REPORT INFORMATION
  Report Type: Report from Study
  Country: AR (occurrence: AR)
  Receive Date: 20150224
  Receipt Date: 20150824
  Transmission Date: 20151125
  Serious: Yes (Hospitalization, Other)
  Sender: FDA-Public Use
  Company Number: AR-BRISTOL-MYERS SQUIBB COMPANY-BMS-2015-008859

PATIENT
  Age: 51 Year
  Sex: Female

DRUGS (3)
  1. ABATACEPT [Suspect]
     Active Substance: ABATACEPT
     Dosage: UNK, QMO
     Route: 042
     Dates: start: 20130520
  2. ABATACEPT [Suspect]
     Active Substance: ABATACEPT
     Indication: RHEUMATOID ARTHRITIS
     Dosage: UNK, Q4WK
     Route: 042
     Dates: start: 20130520, end: 20140801
  3. ABATACEPT [Suspect]
     Active Substance: ABATACEPT
     Dosage: UNK, Q4WK
     Route: 042
     Dates: start: 201411, end: 20150406

REACTIONS (5)
  - Influenza [Not Recovered/Not Resolved]
  - Bladder operation [Recovered/Resolved]
  - Knee operation [Recovering/Resolving]
  - Meniscus injury [Not Recovered/Not Resolved]
  - Headache [Unknown]

NARRATIVE: CASE EVENT DATE: 20140901
